FAERS Safety Report 13739198 (Version 1)
Quarter: 2017Q3

REPORT INFORMATION
  Report Type: Report from Study
  Country: US (occurrence: US)
  Receive Date: 20170710
  Receipt Date: 20170710
  Transmission Date: 20171127
  Serious: No
  Sender: FDA-Public Use
  Company Number: US-SAOL THERAPEUTICS-2017SAO00711

PATIENT
  Age: 70 Year
  Sex: Male

DRUGS (6)
  1. DILAUDID [Suspect]
     Active Substance: HYDROMORPHONE HYDROCHLORIDE
     Dosage: 0.4 MG, \DAY
     Route: 037
     Dates: start: 20170310
  2. CLONIDINE. [Suspect]
     Active Substance: CLONIDINE
     Dosage: 3.333 ?G, \DAY
     Route: 037
     Dates: start: 20170310
  3. BACLOFEN. [Suspect]
     Active Substance: BACLOFEN
     Dosage: 10 ?G, \DAY
     Route: 037
     Dates: start: 20170310
  4. CLONIDINE. [Suspect]
     Active Substance: CLONIDINE
     Dosage: 4.315 ?G, \DAY
     Route: 037
     Dates: start: 20170310
  5. BACLOFEN. [Suspect]
     Active Substance: BACLOFEN
     Dosage: 12.95 ?G, \DAY
     Route: 037
     Dates: start: 20170310
  6. DILAUDID [Suspect]
     Active Substance: HYDROMORPHONE HYDROCHLORIDE
     Dosage: 0.517 MG, \DAY
     Route: 037
     Dates: start: 20170310

REACTIONS (1)
  - Implant site extravasation [Not Recovered/Not Resolved]

NARRATIVE: CASE EVENT DATE: 20170310
